FAERS Safety Report 7249969-0 (Version None)
Quarter: 2011Q1

REPORT INFORMATION
  Report Type: 
  Country: None (occurrence: None)
  Receive Date: 20110119
  Receipt Date: 20101123
  Transmission Date: 20110831
  Serious: Yes (Other)
  Sender: FDA-Public Use
  Company Number: NL-021480

PATIENT
  Age: 72 Year
  Sex: Female

DRUGS (6)
  1. METOPROLOL TARTRATE [Concomitant]
  2. (RITUXIMAB) [Concomitant]
  3. SIMVASTATIN [Concomitant]
  4. DIPYRIDAMOLE [Concomitant]
  5. (CHLORAMBUCIL) [Suspect]
     Indication: NON-HODGKIN'S LYMPHOMA
     Dosage: 10 MG 10 MG QD ORAL
     Route: 048
     Dates: start: 20100923, end: 20101002
  6. (ACETYLSALICYLIC ACID) [Concomitant]

REACTIONS (1)
  - MYOCLONUS [None]
